FAERS Safety Report 4703755-1 (Version None)
Quarter: 2005Q2

REPORT INFORMATION
  Report Type: 
  Country: None (occurrence: None)
  Receive Date: 20050628
  Receipt Date: 20050617
  Transmission Date: 20051028
  Serious: Yes (Other)
  Sender: FDA-Public Use
  Company Number: 2005081860

PATIENT
  Sex: Female
  Weight: 72.5755 kg

DRUGS (11)
  1. CELEBREX [Suspect]
     Indication: BACK DISORDER
     Dosage: 400 MG (200 MG, 2 IN 1 D), ORAL
     Route: 048
  2. BEXTRA [Suspect]
     Indication: OSTEOARTHRITIS
     Dosage: (10 MG,), ORAL
     Route: 048
  3. VIOXX [Suspect]
     Indication: OSTEOARTHRITIS
     Dosage: (25 MG,), ORAL
     Route: 048
  4. ALLOPURINOL [Concomitant]
  5. ASPIRIN [Concomitant]
  6. PRILOSEC [Concomitant]
  7. LANOXIN [Concomitant]
  8. PLAVIX [Concomitant]
  9. NORVASC [Concomitant]
  10. LISINOPRIL [Concomitant]
  11. LIPITOR [Concomitant]

REACTIONS (3)
  - ARTERIAL BYPASS OPERATION [None]
  - ATRIAL FLUTTER [None]
  - PERIPHERAL OCCLUSIVE DISEASE [None]
